FAERS Safety Report 10416504 (Version 2)
Quarter: 2014Q4

REPORT INFORMATION
  Report Type: Spontaneous
  Country: JP (occurrence: JP)
  Receive Date: 20140828
  Receipt Date: 20141001
  Transmission Date: 20150528
  Serious: Yes (Other)
  Sender: FDA-Public Use
  Company Number: JP-009507513-1408JPN015160

PATIENT
  Age: 67 Year
  Sex: Female

DRUGS (4)
  1. PEGINTRON [Suspect]
     Active Substance: PEGINTERFERON ALFA-2B
     Dosage: 60 MICROGRAM, WEEKLY
     Route: 058
     Dates: start: 20140611, end: 20140617
  2. PEGINTRON [Suspect]
     Active Substance: PEGINTERFERON ALFA-2B
     Dosage: 30 MICROGRAM, WEEKLY
     Route: 058
     Dates: start: 20140618, end: 20140716
  3. SIMEPREVIR [Suspect]
     Active Substance: SIMEPREVIR
     Dosage: 100 MG, QD
     Route: 048
     Dates: start: 20140611, end: 20140716
  4. REBETOL [Suspect]
     Active Substance: RIBAVIRIN
     Dosage: 300 MG, DAILY
     Route: 048
     Dates: start: 20140611, end: 20140716

REACTIONS (4)
  - White blood cell count decreased [Unknown]
  - Blood bilirubin increased [Unknown]
  - Haemoglobin decreased [Recovering/Resolving]
  - Platelet count decreased [Recovered/Resolved]

NARRATIVE: CASE EVENT DATE: 20140618
